FAERS Safety Report 21274958 (Version 1)
Quarter: 2022Q3

REPORT INFORMATION
  Report Type: Spontaneous
  Country: BE (occurrence: BE)
  Receive Date: 20220831
  Receipt Date: 20220831
  Transmission Date: 20221026
  Serious: Yes (Other)
  Sender: FDA-Public Use
  Company Number: BE-009507513-2208BEL010538

PATIENT
  Sex: Male

DRUGS (3)
  1. PEMBROLIZUMAB [Suspect]
     Active Substance: PEMBROLIZUMAB
     Indication: Non-small cell lung cancer metastatic
     Dosage: UNK
  2. CARBOPLATIN [Suspect]
     Active Substance: CARBOPLATIN
     Indication: Non-small cell lung cancer metastatic
     Dosage: UNK
  3. PEMETREXED [Suspect]
     Active Substance: PEMETREXED
     Indication: Non-small cell lung cancer metastatic
     Dosage: UNK

REACTIONS (2)
  - Immune-mediated neuropathy [Recovering/Resolving]
  - Nephropathy toxic [Unknown]
